FAERS Safety Report 8176330-7 (Version None)
Quarter: 2012Q1

REPORT INFORMATION
  Report Type: 
  Country: None (occurrence: None)
  Receive Date: 20120227
  Receipt Date: 20120227
  Transmission Date: 20120608
  Serious: Yes (Other)
  Sender: FDA-Public Use
  Company Number: None

PATIENT
  Age: 4 Year
  Sex: Female
  Weight: 14.8 kg

DRUGS (7)
  1. METHYLPHENIDATE [Concomitant]
  2. METADATE CD [Concomitant]
  3. CLONIDINE [Concomitant]
  4. DEPAKOTE [Concomitant]
  5. ZANAFLEX [Suspect]
     Indication: SLEEP DISORDER
     Dosage: 3 PO QHS
     Route: 048
     Dates: start: 20060201
  6. VALIUM [Concomitant]
  7. LEVOCARNITINE [Concomitant]

REACTIONS (1)
  - DRUG EFFECT DECREASED [None]
